FAERS Safety Report 6795017-6 (Version None)
Quarter: 2010Q2

REPORT INFORMATION
  Report Type: 
  Country: None (occurrence: None)
  Receive Date: 20100625
  Receipt Date: 20090515
  Transmission Date: 20101027
  Serious: Yes (Hospitalization)
  Sender: FDA-Public Use
  Company Number: FR-ROCHE-601716

PATIENT
  Sex: Male
  Weight: 110 kg

DRUGS (8)
  1. PEGINTERFERON ALFA-2A [Suspect]
     Route: 065
     Dates: start: 20060222, end: 20070216
  2. EPOETIN BETA [Suspect]
     Dosage: DOSE: 30000 UI
     Route: 058
     Dates: start: 20061106
  3. RIBAVIRIN [Suspect]
     Route: 065
     Dates: start: 20060222, end: 20070216
  4. CITALOPRAM [Concomitant]
     Dates: start: 20060119
  5. ALLOPURINOL [Concomitant]
     Dates: start: 20060119
  6. SYMBICORT [Concomitant]
     Dosage: TDD REPORTED AS 2 SPRAY
     Dates: start: 20060203
  7. BRONCHODUAL [Concomitant]
     Dosage: TDD REPORTED AS 2 SPRAY
     Dates: start: 20050401
  8. SINTROM [Concomitant]
     Dates: start: 20050601

REACTIONS (2)
  - ACUTE PULMONARY OEDEMA [None]
  - CARDIAC FAILURE [None]
